FAERS Safety Report 8877701 (Version 2)
Quarter: 2012Q4

REPORT INFORMATION
  Report Type: 
  Country: CO (occurrence: CO)
  Receive Date: 20121024
  Receipt Date: 20121101
  Transmission Date: 20130627
  Serious: Yes (Other)
  Sender: FDA-Public Use
  Company Number: CO-AMGEN-COLSP2012066291

PATIENT
  Age: 74 Year
  Sex: Female

DRUGS (5)
  1. ENBREL [Suspect]
     Indication: RHEUMATOID ARTHRITIS
     Dosage: 50 mg, weekly
     Route: 058
     Dates: start: 20120123
  2. METHOTREXATE [Suspect]
     Indication: RHEUMATOID ARTHRITIS
     Dosage: 20 mg, weekly
     Route: 048
  3. LEFLUNOMIDE [Suspect]
     Indication: RHEUMATOID ARTHRITIS
     Dosage: 1 mg, 1x/day
     Route: 048
  4. PREDNISOLONE [Suspect]
     Indication: RHEUMATOID ARTHRITIS
     Dosage: 5 mg, 2x/day (each 12 hours)
     Route: 048
  5. FOLIC ACID [Concomitant]
     Indication: RHEUMATOID ARTHRITIS
     Dosage: 1 mg, 1x/day
     Route: 048

REACTIONS (14)
  - Obliterative bronchiolitis [Unknown]
  - Hypoxia [Unknown]
  - Haemodynamic instability [Unknown]
  - Myalgia [Unknown]
  - Chills [Unknown]
  - Malaise [Unknown]
  - Dysuria [Unknown]
  - Pollakiuria [Unknown]
  - Abdominal pain lower [Unknown]
  - Mycobacterial infection [Unknown]
  - Bronchopneumonia [Unknown]
  - Pneumonia bacterial [Unknown]
  - Pneumonia staphylococcal [Unknown]
  - Bronchitis [Unknown]
